FAERS Safety Report 7072247-X (Version None)
Quarter: 2010Q4

REPORT INFORMATION
  Report Type: 
  Country: None (occurrence: None)
  Receive Date: 20101029
  Receipt Date: 20091222
  Transmission Date: 20110411
  Serious: No
  Sender: FDA-Public Use
  Company Number: A0836953A

PATIENT
  Age: 68 Year
  Sex: Female

DRUGS (8)
  1. ADVAIR DISKUS 100/50 [Suspect]
     Indication: PRODUCT USED FOR UNKNOWN INDICATION
     Route: 065
  2. ALBUTEROL [Suspect]
     Indication: PRODUCT USED FOR UNKNOWN INDICATION
  3. XOPENEX [Suspect]
     Indication: ASTHMA
     Route: 055
     Dates: start: 20091110
  4. SINGULAIR [Suspect]
     Indication: ASTHMA
     Route: 065
     Dates: start: 20091110
  5. THYROID [Concomitant]
  6. DIURETIC [Concomitant]
  7. XANAX [Concomitant]
  8. VITAMIN B-12 [Concomitant]

REACTIONS (4)
  - DRUG HYPERSENSITIVITY [None]
  - FATIGUE [None]
  - HEADACHE [None]
  - INCREASED UPPER AIRWAY SECRETION [None]
